FAERS Safety Report 24681279 (Version 2)
Quarter: 2024Q4

REPORT INFORMATION
  Report Type: Spontaneous
  Country: GB (occurrence: GB)
  Receive Date: 20241129
  Receipt Date: 20241209
  Transmission Date: 20250115
  Serious: Yes (Hospitalization, Other)
  Sender: BAYER HEALTHCARE LLC
  Company Number: GB-PERRIGO-24GB010507

PATIENT
  Age: 73 Year
  Sex: Male

DRUGS (6)
  1. LORATADINE [Suspect]
     Active Substance: LORATADINE
     Indication: Product used for unknown indication
     Dosage: 1 DF, QD
     Route: 048
     Dates: start: 202405
  2. LORATADINE [Suspect]
     Active Substance: LORATADINE
     Indication: Seasonal allergy
  3. AMLODIPINE [Interacting]
     Active Substance: AMLODIPINE BESYLATE
     Indication: Product used for unknown indication
     Dosage: 5 MG, QD
     Route: 048
  4. AMLODIPINE [Interacting]
     Active Substance: AMLODIPINE BESYLATE
     Indication: Hypertension
  5. LOSARTAN [Interacting]
     Active Substance: LOSARTAN
     Indication: Product used for unknown indication
     Dosage: 100 MG, QD
     Route: 048
  6. LOSARTAN [Interacting]
     Active Substance: LOSARTAN
     Indication: Hypertension

REACTIONS (6)
  - Fall [Recovered/Resolved]
  - Subdural haematoma [Recovered/Resolved]
  - Nightmare [Recovered/Resolved]
  - Somnambulism [Recovered/Resolved]
  - Drug interaction [Recovered/Resolved]
  - Contusion [None]
